FAERS Safety Report 8376974-3 (Version None)
Quarter: 2012Q2

REPORT INFORMATION
  Report Type: 
  Country: None (occurrence: None)
  Receive Date: 20120522
  Receipt Date: 20120510
  Transmission Date: 20120825
  Serious: Yes (Hospitalization, Other)
  Sender: FDA-Public Use
  Company Number: US-JNJFOC-20120511592

PATIENT
  Sex: Female
  Weight: 57.15 kg

DRUGS (5)
  1. PREDNISONE [Concomitant]
     Route: 048
     Dates: start: 20111201
  2. REMICADE [Suspect]
     Indication: RHEUMATOID ARTHRITIS
     Route: 042
     Dates: start: 20120413, end: 20120413
  3. NEXIUM [Concomitant]
     Indication: HYPERCHLORHYDRIA
     Route: 048
  4. REMICADE [Suspect]
     Route: 042
     Dates: start: 20120302, end: 20120302
  5. ESTROGEN [Concomitant]
     Route: 048

REACTIONS (4)
  - PNEUMONIA BACTERIAL [None]
  - MIGRAINE [None]
  - BRONCHITIS [None]
  - ASTHENIA [None]
